FAERS Safety Report 8177464-3 (Version None)
Quarter: 2012Q1

REPORT INFORMATION
  Report Type: 
  Country: None (occurrence: None)
  Receive Date: 20120301
  Receipt Date: 20120224
  Transmission Date: 20120608
  Serious: Yes (Other)
  Sender: FDA-Public Use
  Company Number: JP-PFIZER INC-2012010068

PATIENT
  Age: 71 Year
  Sex: Male

DRUGS (2)
  1. KARY UNI [Concomitant]
     Indication: CATARACT
     Dosage: THREE GUTTAE 3 TIMES DAILY
     Route: 047
     Dates: start: 20110907
  2. XALATAN [Suspect]
     Indication: GLAUCOMA
     Dosage: 1 GUTTA (DROP) ONCE DAILY
     Route: 047
     Dates: start: 20110907, end: 20111224

REACTIONS (1)
  - VISUAL IMPAIRMENT [None]
